FAERS Safety Report 8160377-0 (Version None)
Quarter: 2012Q1

REPORT INFORMATION
  Report Type: 
  Country: None (occurrence: None)
  Receive Date: 20120223
  Receipt Date: 20120221
  Transmission Date: 20120608
  Serious: No
  Sender: FDA-Public Use
  Company Number: JP-BRACCO-005677

PATIENT
  Age: 74 Year
  Sex: Male

DRUGS (3)
  1. LIPIODOL ULTRA-FLUIDE [Suspect]
  2. EPIRUBICIN HYDROCHLORIDE [Suspect]
  3. GELATIN [Suspect]

REACTIONS (5)
  - LIVER ABSCESS [None]
  - HEPATIC FUNCTION ABNORMAL [None]
  - DISSEMINATED INTRAVASCULAR COAGULATION [None]
  - RENAL IMPAIRMENT [None]
  - OFF LABEL USE [None]
